FAERS Safety Report 18690605 (Version 1)
Quarter: 2021Q1

REPORT INFORMATION
  Report Type: Spontaneous
  Country: ZA (occurrence: ZA)
  Receive Date: 20210101
  Receipt Date: 20210101
  Transmission Date: 20210419
  Serious: No
  Sender: FDA-Public Use
  Company Number: ZA-SA-2018SA325439

PATIENT

DRUGS (3)
  1. CHLOROQUINE. [Concomitant]
     Active Substance: CHLOROQUINE
     Dosage: UNK UNK, UNK
     Route: 065
     Dates: start: 1998
  2. ARAVA [Suspect]
     Active Substance: LEFLUNOMIDE
     Dosage: UNK
     Route: 065
     Dates: start: 2004, end: 2012
  3. METHOTREXATE SODIUM. [Suspect]
     Active Substance: METHOTREXATE SODIUM
     Dosage: UNK
     Dates: start: 2004, end: 20200204

REACTIONS (6)
  - Hand deformity [Unknown]
  - Obesity [Unknown]
  - Exposure during pregnancy [Unknown]
  - Ankle deformity [Unknown]
  - Joint swelling [Unknown]
  - Depression [Unknown]
